FAERS Safety Report 13320422 (Version 2)
Quarter: 2017Q1

REPORT INFORMATION
  Report Type: Spontaneous
  Country: JP (occurrence: JP)
  Receive Date: 20170309
  Receipt Date: 20170330
  Transmission Date: 20170428
  Serious: Yes (Hospitalization)
  Sender: FDA-Public Use
  Company Number: JP-ROCHE-1904315

PATIENT
  Age: 86 Year
  Sex: Male

DRUGS (2)
  1. XELODA [Suspect]
     Active Substance: CAPECITABINE
     Indication: COLON CANCER
     Dosage: ONCE DOSAGE 1800 (UNIT UNCERTAINTY)
     Route: 048
     Dates: start: 20170207
  2. AVASTIN [Suspect]
     Active Substance: BEVACIZUMAB
     Indication: COLON CANCER
     Dosage: ONCE DOSAGE 400 (UNIT UNCERTAINTY)
     Route: 041
     Dates: start: 20170207

REACTIONS (1)
  - Abscess jaw [Recovering/Resolving]
